FAERS Safety Report 11621722 (Version 1)
Quarter: 2015Q4

REPORT INFORMATION
  Report Type: Spontaneous
  Country: US (occurrence: US)
  Receive Date: 20151013
  Receipt Date: 20151013
  Transmission Date: 20160304
  Serious: Yes (Hospitalization)
  Sender: FDA-Public Use
  Company Number: US-WEST-WARD PHARMACEUTICALS CORP.-US-H14001-15-01752

PATIENT
  Age: 26 Year
  Sex: Female

DRUGS (1)
  1. DIGOXIN. [Suspect]
     Active Substance: DIGOXIN
     Indication: SELECTIVE ABORTION
     Route: 065

REACTIONS (8)
  - Toxicity to various agents [Recovered/Resolved]
  - Off label use [Recovered/Resolved]
  - Abdominal pain [Recovered/Resolved]
  - Cardioactive drug level increased [Recovered/Resolved]
  - Sinus tachycardia [Recovered/Resolved]
  - Dizziness [Recovered/Resolved]
  - Pain [Recovered/Resolved]
  - Exposure during pregnancy [Recovered/Resolved]
